FAERS Safety Report 6286941-1 (Version None)
Quarter: 2009Q3

REPORT INFORMATION
  Report Type: 
  Country: None (occurrence: None)
  Receive Date: 20090716
  Receipt Date: 20090506
  Transmission Date: 20100115
  Serious: Yes (Other)
  Sender: FDA-Public Use
  Company Number: 2009BI013675

PATIENT
  Age: 53 Year
  Sex: Female
  Weight: 77.1115 kg

DRUGS (1)
  1. AVONEX [Suspect]
     Indication: MULTIPLE SCLEROSIS
     Dosage: 30 UG;QW;IM
     Dates: start: 20090415, end: 20090429

REACTIONS (6)
  - CONVULSION [None]
  - FALL [None]
  - HYPERSOMNIA [None]
  - HYPOTONIA [None]
  - INFLUENZA LIKE ILLNESS [None]
  - TREMOR [None]
